FAERS Safety Report 5060624-8 (Version None)
Quarter: 2006Q3

REPORT INFORMATION
  Report Type: 
  Country: None (occurrence: None)
  Receive Date: 20060720
  Receipt Date: 20060720
  Transmission Date: 20061208
  Serious: Yes (Hospitalization)
  Sender: FDA-Public Use
  Company Number: None

PATIENT
  Sex: Female

DRUGS (2)
  1. METHOTREXATE [Suspect]
     Indication: RHEUMATOID ARTHRITIS
     Dosage: 7.5MG Q WEEK PO
     Route: 048
  2. BACTRIM DS [Suspect]
     Indication: STAPHYLOCOCCAL INFECTION
     Dosage: 1 TAB BID PO
     Route: 048
     Dates: start: 20060712, end: 20060718

REACTIONS (3)
  - BONE MARROW FAILURE [None]
  - STAPHYLOCOCCAL INFECTION [None]
  - STOMATITIS [None]
